FAERS Safety Report 10075439 (Version 1)
Quarter: 2014Q2

REPORT INFORMATION
  Report Type: Spontaneous
  Country: US (occurrence: US)
  Receive Date: 20140414
  Receipt Date: 20140414
  Transmission Date: 20141212
  Serious: Yes (Other)
  Sender: FDA-Public Use
  Company Number: US-009507513-1404USA005113

PATIENT
  Age: 52 Year
  Sex: Male
  Weight: 133.3 kg

DRUGS (3)
  1. HYZAAR [Suspect]
     Indication: HYPERTENSION
     Dosage: 100-25(DOSE UNITS NOT PROVIDED), QD
     Route: 048
     Dates: start: 2013
  2. ENBREL [Suspect]
     Indication: PSORIATIC ARTHROPATHY
     Dosage: 50 MG, QW
     Route: 058
     Dates: start: 20140109
  3. IBUPROFEN [Suspect]
     Indication: PSORIATIC ARTHROPATHY
     Dosage: 800 MG, TID
     Route: 048
     Dates: start: 2013

REACTIONS (2)
  - Asthma [Unknown]
  - Cough [Recovering/Resolving]
